FAERS Safety Report 6218823-5 (Version None)
Quarter: 2009Q2

REPORT INFORMATION
  Report Type: 
  Country: None (occurrence: None)
  Receive Date: 20090608
  Receipt Date: 20090525
  Transmission Date: 20091009
  Serious: Yes (Death)
  Sender: FDA-Public Use
  Company Number: SE-ELI_LILLY_AND_COMPANY-SE200905005874

PATIENT
  Age: 62 Year
  Sex: Female

DRUGS (10)
  1. ZYPREXA [Suspect]
     Indication: PSYCHOTIC DISORDER
  2. IMOVANE [Concomitant]
  3. TEGRETOL [Concomitant]
  4. PROPAVAN [Concomitant]
  5. AKINETON /00079501/ [Concomitant]
  6. HALDOL [Concomitant]
  7. TAVEGYL /SCH/ [Concomitant]
  8. BRICANYL [Concomitant]
  9. NAPROSYN [Concomitant]
  10. CISORDINOL DEPOT [Concomitant]

REACTIONS (4)
  - ARTERIOSCLEROSIS CORONARY ARTERY [None]
  - BRONCHITIS BACTERIAL [None]
  - EMPHYSEMA [None]
  - VENTRICULAR HYPERTROPHY [None]
